FAERS Safety Report 7617368-5 (Version None)
Quarter: 2011Q3

REPORT INFORMATION
  Report Type: 
  Country: None (occurrence: None)
  Receive Date: 20110718
  Receipt Date: 20110713
  Transmission Date: 20111222
  Serious: No
  Sender: FDA-Public Use
  Company Number: US-PFIZER INC-2011159291

PATIENT
  Sex: Female
  Weight: 108.84 kg

DRUGS (6)
  1. LEVOTHYROXINE [Concomitant]
     Indication: THYROID DISORDER
     Dosage: UNK
  2. NEXIUM [Concomitant]
     Dosage: UNK
  3. LYRICA [Suspect]
     Indication: LUPUS-LIKE SYNDROME
     Dosage: 75 MG, 2X/DAY
     Route: 048
     Dates: start: 20100101
  4. CYCLOBENZAPRINE [Concomitant]
     Dosage: UNK
  5. HYDROCHLOROTHIAZID [Concomitant]
     Dosage: UNK
  6. CYMBALTA [Concomitant]
     Dosage: UNK

REACTIONS (2)
  - PAIN [None]
  - DRUG INEFFECTIVE [None]
